FAERS Safety Report 8282920-3 (Version None)
Quarter: 2012Q2

REPORT INFORMATION
  Report Type: 
  Country: None (occurrence: None)
  Receive Date: 20120410
  Receipt Date: 20120330
  Transmission Date: 20120825
  Serious: Yes (Death, Other)
  Sender: FDA-Public Use
  Company Number: UCM201203-000034

PATIENT
  Age: 20 Year
  Sex: Female

DRUGS (3)
  1. BISOPROLOL FUMARATE [Suspect]
     Indication: ARRHYTHMIA
  2. MINOCYCLINE HCL [Suspect]
     Indication: ACNE
  3. POTASSIUM IODIDE [Suspect]
     Indication: HYPOTHYROIDISM

REACTIONS (2)
  - THYROID DISORDER [None]
  - HYPOTHYROIDISM [None]
